FAERS Safety Report 16766276 (Version 1)
Quarter: 2019Q4

REPORT INFORMATION
  Report Type: Spontaneous
  Country: US (occurrence: US)
  Receive Date: 20190831
  Receipt Date: 20190831
  Transmission Date: 20200122
  Serious: Yes (Other)
  Sender: FDA-Public Use
  Company Number: None

PATIENT
  Age: 40 Year
  Sex: Female
  Weight: 67.5 kg

DRUGS (1)
  1. TAKE ACTION [Suspect]
     Active Substance: LEVONORGESTREL
     Indication: CONTRACEPTION
     Dosage: ?          QUANTITY:1 TABLET(S);OTHER FREQUENCY:ONE TABLET;?
     Route: 048
     Dates: start: 20190818, end: 20190818

REACTIONS (5)
  - Confusional state [None]
  - Suicidal ideation [None]
  - Mood swings [None]
  - Palpitations [None]
  - Depression [None]

NARRATIVE: CASE EVENT DATE: 20190829
